FAERS Safety Report 21284574 (Version 2)
Quarter: 2022Q4

REPORT INFORMATION
  Report Type: Spontaneous
  Country: BR (occurrence: BR)
  Receive Date: 20220902
  Receipt Date: 20221006
  Transmission Date: 20230112
  Serious: Yes (Other)
  Sender: FDA-Public Use
  Company Number: BR-CELLTRION INC.-2022BR013855

PATIENT

DRUGS (10)
  1. INFLIXIMAB [Suspect]
     Active Substance: INFLIXIMAB
     Indication: Rheumatic disorder
     Dosage: 2 AMPOULES (100MG) EVERY 8 WEEKS
     Route: 042
     Dates: start: 20220818
  2. INFLIXIMAB [Suspect]
     Active Substance: INFLIXIMAB
     Indication: Osteoporosis
  3. INFLIXIMAB [Suspect]
     Active Substance: INFLIXIMAB
     Indication: Rheumatoid arthritis
  4. BUDESONIDE\FORMOTEROL FUMARATE [Concomitant]
     Active Substance: BUDESONIDE\FORMOTEROL FUMARATE
     Indication: Bronchitis
     Dosage: 400 MILLIGRAM, 2 CAPSULES A DAY
     Dates: start: 2005
  5. BUDESONIDE\FORMOTEROL FUMARATE [Concomitant]
     Active Substance: BUDESONIDE\FORMOTEROL FUMARATE
     Indication: Emphysema
  6. ALBUTEROL [Concomitant]
     Active Substance: ALBUTEROL
     Indication: Bronchitis
     Dosage: 100 MILLIGRAM, SPRAY 2 - 4 TIMES
     Dates: start: 2005
  7. ALBUTEROL [Concomitant]
     Active Substance: ALBUTEROL
     Indication: Emphysema
  8. CARBAMAZEPINE [Concomitant]
     Active Substance: CARBAMAZEPINE
     Indication: Depression
     Dosage: 3 TABLETS A DAY
     Route: 048
     Dates: start: 2005
  9. CLONAZEPAM [Concomitant]
     Active Substance: CLONAZEPAM
     Indication: Depression
     Dosage: 2 MILLIGRAM, 1 TABLET A DAY
     Route: 048
     Dates: start: 2005
  10. LEVOCINE [Concomitant]
     Indication: Depression
     Dosage: 4 MILLIGRAM, 6-7 DROPS PER DAY
     Route: 048
     Dates: start: 2005

REACTIONS (10)
  - Pain [Unknown]
  - Pain [Unknown]
  - Peripheral swelling [Recovering/Resolving]
  - Illness [Unknown]
  - Joint lock [Recovering/Resolving]
  - Pyrexia [Unknown]
  - Pain in extremity [Recovering/Resolving]
  - Treatment delayed [Unknown]
  - Off label use [Unknown]
  - Prescribed overdose [Unknown]
